FAERS Safety Report 8880292 (Version 1)
Quarter: 2012Q4

REPORT INFORMATION
  Report Type: 
  Country: GB (occurrence: GB)
  Receive Date: 20121031
  Receipt Date: 20121031
  Transmission Date: 20130627
  Serious: Yes (Death)
  Sender: FDA-Public Use
  Company Number: PHHY2012GB096264

PATIENT
  Age: 69 Year
  Sex: Female
  Weight: 80 kg

DRUGS (6)
  1. DIAZEPAM [Suspect]
  2. NITRAZEPAM [Interacting]
     Dosage: 5 mg, UNK
  3. CITALOPRAM [Suspect]
     Dosage: 30 mg, UNK
  4. CITALOPRAM [Suspect]
     Dosage: 10 mg, UNK
  5. REMINYL (GALANTAMINE HYDROBROMIDE) [Interacting]
     Dosage: Reminly was abruptly stopped due to overdosing effects as benzodia\zepine levels dropped
  6. ATIVAN [Suspect]

REACTIONS (4)
  - Catatonia [Fatal]
  - Accidental overdose [Fatal]
  - Drug interaction [Fatal]
  - Withdrawal syndrome [Fatal]
